FAERS Safety Report 4949705-4 (Version None)
Quarter: 2006Q1

REPORT INFORMATION
  Report Type: 
  Country: None (occurrence: None)
  Receive Date: 20060315
  Receipt Date: 20060221
  Transmission Date: 20060701
  Serious: Yes (Hospitalization)
  Sender: FDA-Public Use
  Company Number: AE2006-0196

PATIENT
  Age: 37 Year
  Sex: Male

DRUGS (3)
  1. MUCINEX DM (GUAIFENESIN/DEXTROMETHORPHAN HBR) [Suspect]
     Indication: UPPER RESPIRATORY TRACT INFECTION
     Dosage: 1 MG BID ORAL
     Route: 048
     Dates: start: 20060216, end: 20060217
  2. MOTRIN (CONTIN) [Concomitant]
  3. ZYRTEC (CONTIN) [Concomitant]

REACTIONS (10)
  - CONVULSION [None]
  - FALL [None]
  - HEAD INJURY [None]
  - MUSCLE RIGIDITY [None]
  - MUSCULOSKELETAL STIFFNESS [None]
  - NAUSEA [None]
  - PYREXIA [None]
  - SYNCOPE [None]
  - TINNITUS [None]
  - TREMOR [None]
